FAERS Safety Report 4286551-1 (Version None)
Quarter: 2004Q1

REPORT INFORMATION
  Report Type: 
  Country: None (occurrence: None)
  Receive Date: 20040204
  Receipt Date: 20040127
  Transmission Date: 20041129
  Serious: Yes (Death, Life-Threatening)
  Sender: FDA-Public Use
  Company Number: 1199842699

PATIENT
  Age: 55 Year
  Sex: Male
  Weight: 79 kg

DRUGS (14)
  1. GLUCOR (ACARBOSE) [Suspect]
     Dosage: 150 MG, TOTAL DAILY, ORAL
     Route: 048
     Dates: end: 19970101
  2. ALDACTONE [Suspect]
     Dosage: ORAL
     Route: 048
     Dates: end: 19970101
  3. STAGID (METFORMIN EMBONATE) [Suspect]
     Dates: end: 19970101
  4. GLYBURIDE [Suspect]
     Dates: end: 19970101
  5. LASIX [Suspect]
     Dosage: 40 MG, TOTAL DAILY, ORAL
     Route: 048
     Dates: end: 19970101
  6. AMYLASE, PANCREATIC [Concomitant]
  7. LOPRAZOLAM MESILATE [Concomitant]
  8. MEPROBAMATE [Concomitant]
  9. FLUOXETINE CHLORHYDRATE [Concomitant]
  10. ACAMPROSATE [Concomitant]
  11. MACROGOL [Concomitant]
  12. CEFPODOXIME PROXETIL [Concomitant]
  13. PARACETAMOL [Concomitant]
  14. VITAMIN B9 [Concomitant]

REACTIONS (3)
  - BLOOD BILIRUBIN INCREASED [None]
  - BLOOD GLUCOSE DECREASED [None]
  - LACTIC ACIDOSIS [None]
